FAERS Safety Report 11840541 (Version 1)
Quarter: 2015Q4

REPORT INFORMATION
  Report Type: Spontaneous
  Country: NZ (occurrence: None)
  Receive Date: 20151215
  Receipt Date: 20151215
  Transmission Date: 20160305
  Serious: Yes (Hospitalization, Disabling, Other)
  Sender: FDA-Public Use
  Company Number: None

PATIENT
  Age: 63 Year
  Sex: Female
  Weight: 48 kg

DRUGS (6)
  1. FLIXOTIDE 250 [Concomitant]
  2. FOSAMAX PLUS D [Concomitant]
     Active Substance: ALENDRONATE SODIUM\CHOLECALCIFEROL
  3. VENTOLIN [Concomitant]
     Active Substance: ALBUTEROL SULFATE
  4. FOSAMAX PLUS D [Suspect]
     Active Substance: ALENDRONATE SODIUM\CHOLECALCIFEROL
     Indication: OSTEOPOROSIS
     Dosage: 70MG ALENDRONATE SODIUM W/5600IU CHOLECALCIFEROL ?1 TABLET?WEEKLY?BY MOUTH
     Route: 048
     Dates: start: 200602, end: 20130909
  5. PREDNISONE. [Concomitant]
     Active Substance: PREDNISONE
  6. COLCALCIFEROL [Concomitant]

REACTIONS (3)
  - Femur fracture [None]
  - Balance disorder [None]
  - Fall [None]

NARRATIVE: CASE EVENT DATE: 20130909
